FAERS Safety Report 16552128 (Version 1)
Quarter: 2019Q3

REPORT INFORMATION
  Report Type: Spontaneous
  Country: US (occurrence: US)
  Receive Date: 20190529
  Receipt Date: 20190529
  Transmission Date: 20191004
  Serious: Yes (Hospitalization)
  Sender: FDA-Public Use
  Company Number: None

PATIENT
  Age: 62 Year
  Sex: Male

DRUGS (33)
  1. EPHINEPHRINE [Concomitant]
     Active Substance: EPINEPHRINE
  2. LEVOCETIRIZI [Concomitant]
  3. MONTELUKAST [Concomitant]
     Active Substance: MONTELUKAST SODIUM
  4. MULTI-VITAMIN [Concomitant]
     Active Substance: .ALPHA.-TOCOPHEROL ACETATE, DL-\ASCORBIC ACID\CYANOCOBALAMIN\FLUORIDE ION\FOLIC ACID\NIACIN\PYRIDOXINE\RIBOFLAVIN\THIAMINE\VITAMIN A\VITAMIN D
  5. OMPRAZOLE [Concomitant]
     Active Substance: OMEPRAZOLE
  6. QUEITAPINE [Concomitant]
  7. ATORVASTATIN [Concomitant]
     Active Substance: ATORVASTATIN
  8. HALOBETSOL [Concomitant]
  9. LITHIUM. [Concomitant]
     Active Substance: LITHIUM
  10. ALBUTEROL. [Concomitant]
     Active Substance: ALBUTEROL
  11. BUDPROPION [Concomitant]
  12. MELATONIN [Concomitant]
     Active Substance: MELATONIN
  13. PROBIOTIC [Concomitant]
     Active Substance: PROBIOTICS NOS
  14. BUDESONIDE. [Concomitant]
     Active Substance: BUDESONIDE
  15. ELIQUIS [Concomitant]
     Active Substance: APIXABAN
  16. FLUTICASONE. [Concomitant]
     Active Substance: FLUTICASONE
  17. LACTULOSE. [Concomitant]
     Active Substance: LACTULOSE
  18. PROAIR HFA [Concomitant]
     Active Substance: ALBUTEROL SULFATE
  19. PROMETHAZINE [Concomitant]
     Active Substance: PROMETHAZINE HYDROCHLORIDE
  20. ZINC. [Concomitant]
     Active Substance: ZINC
  21. LOMOTIL [Concomitant]
     Active Substance: ATROPINE SULFATE\DIPHENOXYLATE HYDROCHLORIDE
  22. SINGULAIR [Concomitant]
     Active Substance: MONTELUKAST SODIUM
  23. STELARA [Suspect]
     Active Substance: USTEKINUMAB
     Indication: CROHN^S DISEASE
     Dates: start: 20190410
  24. CALCIUM 600 [Concomitant]
     Active Substance: CALCIUM
  25. CLOPIDOGREL [Concomitant]
     Active Substance: CLOPIDOGREL BISULFATE
  26. IPRATROPIUM [Concomitant]
     Active Substance: IPRATROPIUM
  27. LATUDA [Concomitant]
     Active Substance: LURASIDONE HYDROCHLORIDE
  28. PREDNISONE. [Concomitant]
     Active Substance: PREDNISONE
  29. VITAMIN B [Concomitant]
     Active Substance: VITAMIN B
  30. VITAMIN D3 [Concomitant]
     Active Substance: CHOLECALCIFEROL
  31. WIXELA INHUB AER [Concomitant]
  32. IRON [Concomitant]
     Active Substance: IRON
  33. LYRICA [Concomitant]
     Active Substance: PREGABALIN

REACTIONS (1)
  - Adverse drug reaction [None]

NARRATIVE: CASE EVENT DATE: 20190410
